FAERS Safety Report 6099776-X (Version None)
Quarter: 2009Q1

REPORT INFORMATION
  Report Type: 
  Country: None (occurrence: None)
  Receive Date: 20090303
  Receipt Date: 20090223
  Transmission Date: 20090719
  Serious: Yes (Life-Threatening, Other)
  Sender: FDA-Public Use
  Company Number: CA-AMGEN-QUU335386

PATIENT
  Age: 61 Year
  Sex: Female
  Weight: 74 kg

DRUGS (18)
  1. ENBREL [Suspect]
     Indication: DRUG USE FOR UNKNOWN INDICATION
     Route: 058
  2. ALDACTONE [Concomitant]
  3. ASPIRIN [Concomitant]
  4. BISOPROLOL [Concomitant]
  5. DICLOFENAC [Concomitant]
  6. DILTIAZEM [Concomitant]
  7. FERROUS GLUCONATE [Concomitant]
  8. GLICLAZIDE [Concomitant]
  9. HYDROCHLOROTHIAZIDE [Concomitant]
  10. LASIX [Concomitant]
  11. LEVOTHYROXINE SODIUM [Concomitant]
  12. LIPITOR [Concomitant]
  13. METFORMIN HCL [Concomitant]
  14. OXYCONTIN [Concomitant]
  15. PANTOPRAZOLE SODIUM [Concomitant]
  16. STOOL SOFTENER [Concomitant]
  17. TYLENOL [Concomitant]
  18. ASCORBIC ACID [Concomitant]

REACTIONS (6)
  - ASTHENIA [None]
  - BRADYCARDIA [None]
  - HYPERKALAEMIA [None]
  - HYPERTENSION [None]
  - MYOCARDIAL INFARCTION [None]
  - URINARY TRACT INFECTION [None]
